FAERS Safety Report 11783818 (Version 1)
Quarter: 2015Q4

REPORT INFORMATION
  Report Type: Spontaneous
  Country: DE (occurrence: DE)
  Receive Date: 20151127
  Receipt Date: 20151127
  Transmission Date: 20160305
  Serious: Yes (Life-Threatening, Hospitalization, Disabling)
  Sender: FDA-Public Use
  Company Number: DE-ASTRAZENECA-2015SF19829

PATIENT
  Age: 67 Year
  Sex: Female

DRUGS (5)
  1. OLANZAPINE. [Suspect]
     Active Substance: OLANZAPINE
     Route: 048
     Dates: start: 20150410
  2. VALPROATE SODIUM. [Concomitant]
     Active Substance: VALPROATE SODIUM
     Route: 048
     Dates: start: 20150410
  3. VALPROATE SODIUM. [Concomitant]
     Active Substance: VALPROATE SODIUM
     Route: 048
  4. SEROQUEL XR [Suspect]
     Active Substance: QUETIAPINE FUMARATE
     Route: 048
     Dates: start: 20150410
  5. CLOZAPINE. [Suspect]
     Active Substance: CLOZAPINE
     Route: 048
     Dates: start: 20150410

REACTIONS (4)
  - Ileus [Not Recovered/Not Resolved]
  - Peritonitis [Unknown]
  - Dyspnoea [Unknown]
  - Intestinal ischaemia [Unknown]

NARRATIVE: CASE EVENT DATE: 20150410
